FAERS Safety Report 11870463 (Version 1)
Quarter: 2015Q4

REPORT INFORMATION
  Report Type: Spontaneous
  Country: US (occurrence: US)
  Receive Date: 20151228
  Receipt Date: 20151228
  Transmission Date: 20160305
  Serious: Yes (Other)
  Sender: FDA-Public Use
  Company Number: US-SA-2015SA025047

PATIENT
  Sex: Male

DRUGS (3)
  1. CARDIZEM [Concomitant]
     Active Substance: DILTIAZEM HYDROCHLORIDE
  2. PLAVIX [Suspect]
     Active Substance: CLOPIDOGREL BISULFATE
     Route: 065
  3. XARELTO [Suspect]
     Active Substance: RIVAROXABAN
     Dosage: START DATE: MONTH AND A HALF AGO; POSSIBLE START DATE: DEC 2014
     Route: 048
     Dates: start: 201412

REACTIONS (2)
  - Ear haemorrhage [Unknown]
  - Epistaxis [Unknown]

NARRATIVE: CASE EVENT DATE: 20150204
